FAERS Safety Report 10312703 (Version 1)
Quarter: 2014Q3

REPORT INFORMATION
  Report Type: Spontaneous
  Country: GB (occurrence: GB)
  Receive Date: 20140718
  Receipt Date: 20140718
  Transmission Date: 20150326
  Serious: Yes (Hospitalization, Other)
  Sender: FDA-Public Use
  Company Number: PHFR2014GB004997

PATIENT
  Age: 33 Year
  Sex: Male
  Weight: 95 kg

DRUGS (4)
  1. OLANZAPINE. [Concomitant]
     Active Substance: OLANZAPINE
     Dosage: UNK, STOPPED BEFORE CLOZAPINE
     Dates: end: 2014
  2. ARIPIPRAZOLE [Concomitant]
     Active Substance: ARIPIPRAZOLE
     Dosage: UNK (STOPPED BEFORE CLOZAPINE)
     Dates: end: 2014
  3. CITRUS AURANTIUM [Concomitant]
     Dosage: UNK (POSSIBLY FEW WEEKS BEFORE THE REACTION)
  4. CLOZAPINE. [Suspect]
     Active Substance: CLOZAPINE
     Indication: SCHIZOPHRENIA, PARANOID TYPE
     Dosage: 225 MG, BID
     Route: 048
     Dates: start: 20140420, end: 20140620

REACTIONS (7)
  - Peripheral swelling [Unknown]
  - Delirium [Unknown]
  - Arrhythmia [Recovered/Resolved]
  - Blood creatine phosphokinase increased [Unknown]
  - Tachycardia [Recovered/Resolved]
  - Muscular weakness [Unknown]
  - Rhabdomyolysis [Recovered/Resolved]

NARRATIVE: CASE EVENT DATE: 20140606
